FAERS Safety Report 20119886 (Version 1)
Quarter: 2021Q4

REPORT INFORMATION
  Report Type: Spontaneous
  Country: CN (occurrence: CN)
  Receive Date: 20211126
  Receipt Date: 20211126
  Transmission Date: 20220303
  Serious: Yes (Other)
  Sender: FDA-Public Use
  Company Number: CN-GLAXOSMITHKLINE-CNCH2021APC085320

PATIENT
  Age: 64 Year
  Sex: Male
  Weight: 62 kg

DRUGS (2)
  1. IBUPROFEN [Suspect]
     Active Substance: IBUPROFEN
     Indication: Pain
     Dosage: 0.4 G, BID
     Route: 048
     Dates: start: 20211115, end: 20211118
  2. IBUPROFEN [Suspect]
     Active Substance: IBUPROFEN
     Indication: Periodontitis

REACTIONS (4)
  - Gastric haemorrhage [Recovering/Resolving]
  - Melaena [Recovered/Resolved]
  - Dyspepsia [Recovering/Resolving]
  - Abdominal pain [Recovering/Resolving]

NARRATIVE: CASE EVENT DATE: 20211118
